FAERS Safety Report 6799398 (Version 2)
Quarter: 2013Q1

REPORT INFORMATION
  Report Type: Spontaneous
  Country: NL (occurrence: None)
  Receive Date: 20081017
  Receipt Date: 20130115
  Transmission Date: 20140127
  Serious: Yes (Hospitalization)
  Sender: FDA-Public Use
  Company Number: 2008AP002679

PATIENT
  Age: 17 Year
  Sex: Female

DRUGS (4)
  1. CARBAMAZEPINE [Suspect]
     Indication: GRAND MAL CONVULSION
     Route: 048
     Dates: start: 20080530, end: 20080720
  2. ACETYLSALICYLIC ACID (ACETYLSALICYLIC ACID) [Concomitant]
  3. CODEINE (CODEINE) [Concomitant]
  4. CAFFEINE CITRATE [Concomitant]

REACTIONS (8)
  - Alanine aminotransferase increased [None]
  - Aspartate aminotransferase increased [None]
  - Gamma-glutamyltransferase increased [None]
  - Bilirubin conjugated increased [None]
  - Glossitis [None]
  - Fatigue [None]
  - Decreased appetite [None]
  - Muscular weakness [None]
